FAERS Safety Report 16339584 (Version 2)
Quarter: 2019Q3

REPORT INFORMATION
  Report Type: Spontaneous
  Country: US (occurrence: US)
  Receive Date: 20190521
  Receipt Date: 20190906
  Transmission Date: 20191004
  Serious: No
  Sender: FDA-Public Use
  Company Number: US-SA-2019SA137335

PATIENT
  Age: 62 Year
  Sex: Male

DRUGS (9)
  1. DOXEPIN HCL [Concomitant]
     Active Substance: DOXEPIN HYDROCHLORIDE
  2. FLUOXETINE [Concomitant]
     Active Substance: FLUOXETINE HYDROCHLORIDE
  3. TRAZODONE [Concomitant]
     Active Substance: TRAZODONE HYDROCHLORIDE
  4. DULOXETINE HYDROCHLORIDE. [Concomitant]
     Active Substance: DULOXETINE HYDROCHLORIDE
  5. METFORMIN HCL [Concomitant]
     Active Substance: METFORMIN HYDROCHLORIDE
  6. AMLODINE [AMLODIPINE] [Concomitant]
  7. AUBAGIO [Suspect]
     Active Substance: TERIFLUNOMIDE
     Dosage: 14 MG, QD
     Route: 048
     Dates: start: 20190419
  8. DEXILANT [Concomitant]
     Active Substance: DEXLANSOPRAZOLE
  9. INDOMETHACIN [INDOMETACIN] [Concomitant]
     Active Substance: INDOMETHACIN

REACTIONS (12)
  - Memory impairment [Unknown]
  - Balance disorder [Unknown]
  - Blister [Unknown]
  - Blood pressure increased [Unknown]
  - Asthenia [Unknown]
  - Dyspnoea [Unknown]
  - Unevaluable event [Unknown]
  - Eye pain [Unknown]
  - Insomnia [Unknown]
  - Appetite disorder [Unknown]
  - Depression [Unknown]
  - Disturbance in attention [Unknown]

NARRATIVE: CASE EVENT DATE: 2019
